FAERS Safety Report 14256367 (Version 1)
Quarter: 2017Q4

REPORT INFORMATION
  Report Type: Spontaneous
  Country: JP (occurrence: JP)
  Receive Date: 20171206
  Receipt Date: 20171206
  Transmission Date: 20180321
  Serious: Yes (Other)
  Sender: FDA-Public Use
  Company Number: JP-JNJFOC-20171201938

PATIENT
  Age: 32 Year
  Sex: Male

DRUGS (1)
  1. REMICADE [Suspect]
     Active Substance: INFLIXIMAB
     Indication: PSORIASIS
     Route: 042

REACTIONS (7)
  - Dizziness [Unknown]
  - Urticaria [Unknown]
  - Colour blindness [Unknown]
  - White matter lesion [Recovering/Resolving]
  - Nervous system disorder [Recovering/Resolving]
  - Flushing [Unknown]
  - Visual acuity reduced [Unknown]
